FAERS Safety Report 23626854 (Version 1)
Quarter: 2024Q1

REPORT INFORMATION
  Report Type: Spontaneous
  Country: SK (occurrence: SK)
  Receive Date: 20240313
  Receipt Date: 20240313
  Transmission Date: 20240409
  Serious: Yes (Other)
  Sender: FDA-Public Use
  Company Number: SK-CELLTRION INC.-2024SK005705

PATIENT

DRUGS (3)
  1. ADALIMUMAB [Suspect]
     Active Substance: ADALIMUMAB\ISOPROPYL ALCOHOL
     Indication: Rheumatoid arthritis
     Dosage: UNK
     Route: 058
     Dates: start: 2019
  2. METHOTREXATE [Concomitant]
     Active Substance: METHOTREXATE
     Indication: Product used for unknown indication
     Dosage: 7.5 MG
     Dates: start: 2019
  3. METHOTREXATE [Concomitant]
     Active Substance: METHOTREXATE
     Dosage: GRADUALLY INCREASED TO 15 MG
     Dates: start: 2018

REACTIONS (3)
  - Rheumatoid arthritis [Unknown]
  - Joint swelling [Unknown]
  - Fatigue [Unknown]
